FAERS Safety Report 12887494 (Version 1)
Quarter: 2016Q4

REPORT INFORMATION
  Report Type: Report from Study
  Country: AU (occurrence: AU)
  Receive Date: 20161026
  Receipt Date: 20161026
  Transmission Date: 20170207
  Serious: Yes (Other)
  Sender: FDA-Public Use
  Company Number: AU-GILEAD-2016-0200454

PATIENT
  Age: 30 Year
  Sex: Female
  Weight: 70 kg

DRUGS (4)
  1. ELEANOR [Concomitant]
     Indication: MENSTRUAL CYCLE MANAGEMENT
     Dosage: UNK
     Route: 065
     Dates: start: 20151019, end: 20151115
  2. CERVIDIL                           /00278201/ [Concomitant]
  3. VITAMINS                           /00067501/ [Concomitant]
     Active Substance: VITAMINS
     Indication: PRENATAL CARE
     Dosage: UNK
     Route: 065
     Dates: start: 20150701
  4. EMTRICITABINE/TENOFOVIR DISOPROXIL FUMARATE [Suspect]
     Active Substance: EMTRICITABINE\TENOFOVIR DISOPROXIL FUMARATE
     Indication: PROPHYLAXIS AGAINST HIV INFECTION
     Dosage: UNK
     Route: 065
     Dates: start: 20150528, end: 20151115

REACTIONS (2)
  - Maternal exposure during pregnancy [Recovered/Resolved]
  - Foetal distress syndrome [Unknown]

NARRATIVE: CASE EVENT DATE: 20151205
